FAERS Safety Report 14250191 (Version 1)
Quarter: 2017Q4

REPORT INFORMATION
  Report Type: Report from Study
  Country: US (occurrence: US)
  Receive Date: 20171205
  Receipt Date: 20171205
  Transmission Date: 20180321
  Serious: No
  Sender: FDA-Public Use
  Company Number: PHEH2017US038914

PATIENT
  Sex: Male

DRUGS (2)
  1. COSENTYX [Suspect]
     Active Substance: SECUKINUMAB
     Dosage: 300 MG, QMO (ONCE EVERY FOUR WEEKS AFTER FIFTH WEEK)
     Route: 058
  2. COSENTYX [Suspect]
     Active Substance: SECUKINUMAB
     Indication: PSORIATIC ARTHROPATHY
     Dosage: 300 MG, QW (ONCE A WEEK FOR FIVE WEEKS)
     Route: 058
     Dates: start: 20161014

REACTIONS (5)
  - Naevus flammeus [Unknown]
  - Psoriasis [Unknown]
  - Pigmentation disorder [Unknown]
  - Nodule [Unknown]
  - Arthralgia [Not Recovered/Not Resolved]
